FAERS Safety Report 5641962-4 (Version None)
Quarter: 2008Q1

REPORT INFORMATION
  Report Type: 
  Country: None (occurrence: None)
  Receive Date: 20080227
  Receipt Date: 20080218
  Transmission Date: 20080703
  Serious: Yes (Other)
  Sender: FDA-Public Use
  Company Number: BR-PFIZER INC-2008015795

PATIENT
  Sex: Male

DRUGS (1)
  1. CARDURA [Suspect]
     Route: 048

REACTIONS (1)
  - OVERDOSE [None]
